FAERS Safety Report 4523787-6 (Version None)
Quarter: 2004Q4

REPORT INFORMATION
  Report Type: 
  Country: None (occurrence: None)
  Receive Date: 20041119
  Receipt Date: 20041018
  Transmission Date: 20050328
  Serious: No
  Sender: FDA-Public Use
  Company Number: PHEH2004US09265

PATIENT
  Age: 75 Year
  Sex: Female
  Weight: 52.2 kg

DRUGS (4)
  1. ZELNORM [Suspect]
     Indication: IRRITABLE BOWEL SYNDROME
     Dosage: 2 MG, BID, ORAL
     Route: 048
     Dates: start: 20040825, end: 20040826
  2. TEMAZEPAM [Concomitant]
  3. TYLENOL (CAPLET) [Concomitant]
  4. ACIPHEX [Concomitant]

REACTIONS (3)
  - ANXIETY [None]
  - MEMORY IMPAIRMENT [None]
  - RESTLESSNESS [None]
